FAERS Safety Report 4922936-5 (Version None)
Quarter: 2006Q1

REPORT INFORMATION
  Report Type: 
  Country: None (occurrence: None)
  Receive Date: 20060224
  Receipt Date: 20060215
  Transmission Date: 20060701
  Serious: Yes (Hospitalization)
  Sender: FDA-Public Use
  Company Number: FR-MERCK-0602FRA00062

PATIENT
  Age: 4 Year
  Sex: Male
  Weight: 20 kg

DRUGS (2)
  1. CANCIDAS [Suspect]
     Indication: BRONCHOPULMONARY ASPERGILLOSIS
     Route: 051
     Dates: start: 20050620, end: 20050701
  2. VORICONAZOLE [Concomitant]
     Indication: BRONCHOPULMONARY ASPERGILLOSIS
     Route: 051
     Dates: start: 20050513, end: 20050701

REACTIONS (4)
  - HEPATIC FAILURE [None]
  - HEPATITIS [None]
  - OFF LABEL USE [None]
  - PANCREATITIS [None]
